FAERS Safety Report 19425669 (Version 1)
Quarter: 2021Q2

REPORT INFORMATION
  Report Type: Spontaneous
  Country: US (occurrence: US)
  Receive Date: 20210616
  Receipt Date: 20210616
  Transmission Date: 20210717
  Serious: No
  Sender: FDA-Public Use
  Company Number: US-ORGANON-O2106USA000929

PATIENT
  Sex: Male
  Weight: 93.89 kg

DRUGS (1)
  1. SINEMET [Suspect]
     Active Substance: CARBIDOPA\LEVODOPA
     Indication: PARKINSONISM
     Dosage: 200 MILLIGRAM, TID (600MG/DAY)
     Route: 048

REACTIONS (1)
  - Nausea [Unknown]
